FAERS Safety Report 21897950 (Version 4)
Quarter: 2023Q1

REPORT INFORMATION
  Report Type: Spontaneous
  Country: IN (occurrence: IN)
  Receive Date: 20230123
  Receipt Date: 20230308
  Transmission Date: 20230418
  Serious: Yes (Hospitalization, Other)
  Sender: FDA-Public Use
  Company Number: IN-PFIZER INC-2021679450

PATIENT
  Age: 52 Year
  Sex: Female

DRUGS (4)
  1. PALBOCICLIB [Suspect]
     Active Substance: PALBOCICLIB
     Indication: Breast cancer metastatic
     Dosage: 125 MG, CYCLIC (ONCE A DAY FOR 3 WEEKS, REPEAT AFTER 1 WEEK FOR 3 MONTHS)
     Route: 048
     Dates: start: 20210322, end: 20210609
  2. PALBOCICLIB [Suspect]
     Active Substance: PALBOCICLIB
     Dosage: 100 MG, 1X/DAY
     Route: 048
     Dates: start: 20210609, end: 20210623
  3. FULVESTRANT [Concomitant]
     Active Substance: FULVESTRANT
     Dosage: EVERY 4 WEEKS FOR 3 MONTHS
     Route: 030
  4. ZOLEDRONIC ACID [Concomitant]
     Active Substance: ZOLEDRONIC ACID
     Dosage: EVERY 4 WEEKS FOR 3 MONTHS

REACTIONS (20)
  - Leukopenia [Not Recovered/Not Resolved]
  - Haemoglobin decreased [Unknown]
  - Thrombocytopenia [Unknown]
  - Urinary tract infection [Not Recovered/Not Resolved]
  - Dyschezia [Unknown]
  - Pain [Unknown]
  - Back pain [Recovering/Resolving]
  - Oropharyngeal pain [Unknown]
  - Localised infection [Unknown]
  - Musculoskeletal pain [Unknown]
  - Swelling [Unknown]
  - Neoplasm progression [Unknown]
  - Constipation [Unknown]
  - Proctalgia [Unknown]
  - Blood pressure increased [Unknown]
  - Weight increased [Unknown]
  - Anal fissure [Unknown]
  - Platelet count abnormal [Unknown]
  - Osteoporosis [Unknown]
  - Blood alkaline phosphatase increased [Unknown]
